FAERS Safety Report 18693673 (Version 1)
Quarter: 2021Q1

REPORT INFORMATION
  Report Type: Spontaneous
  Country: ES (occurrence: ES)
  Receive Date: 20210104
  Receipt Date: 20210104
  Transmission Date: 20210419
  Serious: Yes (Other)
  Sender: FDA-Public Use
  Company Number: ES-SUN PHARMACEUTICAL INDUSTRIES LTD-2020R1-273861

PATIENT
  Age: 24 Month
  Sex: Male

DRUGS (4)
  1. CALCIUM [Concomitant]
     Active Substance: CALCIUM
     Indication: HEREDITARY HYPOPHOSPHATAEMIC RICKETS
     Dosage: UNK
     Route: 065
  2. CALCIFEDIOL [Concomitant]
     Active Substance: CALCIFEDIOL
     Indication: HEREDITARY HYPOPHOSPHATAEMIC RICKETS
     Dosage: 300 MCG
     Route: 065
  3. CALCITRIOL. [Concomitant]
     Active Substance: CALCITRIOL
     Indication: HEREDITARY HYPOPHOSPHATAEMIC RICKETS
     Dosage: 30 MCG, DAILY
     Route: 065
  4. CINACALCET. [Suspect]
     Active Substance: CINACALCET
     Indication: HEREDITARY HYPOPHOSPHATAEMIC RICKETS
     Dosage: UNK
     Route: 065

REACTIONS (2)
  - Off label use [Unknown]
  - Hypercalciuria [Unknown]
